FAERS Safety Report 5168909-1 (Version None)
Quarter: 2006Q4

REPORT INFORMATION
  Report Type: 
  Country: None (occurrence: None)
  Receive Date: 20061211
  Receipt Date: 20061129
  Transmission Date: 20070319
  Serious: Yes (Other)
  Sender: FDA-Public Use
  Company Number: PHNU2006DE03987

PATIENT
  Sex: Female

DRUGS (1)
  1. ZOMETA [Suspect]
     Indication: MULTIPLE MYELOMA
     Dosage: 4 MG, QMO
     Dates: start: 20050101, end: 20060801

REACTIONS (4)
  - JAW DISORDER [None]
  - OSTEONECROSIS [None]
  - PERIODONTITIS [None]
  - TOOTH LOSS [None]
